FAERS Safety Report 8144812-X (Version None)
Quarter: 2012Q1

REPORT INFORMATION
  Report Type: 
  Country: None (occurrence: None)
  Receive Date: 20120217
  Receipt Date: 20120206
  Transmission Date: 20120608
  Serious: Yes (Other)
  Sender: FDA-Public Use
  Company Number: US-UCBSA-050012

PATIENT
  Age: 39 Year
  Sex: Male

DRUGS (8)
  1. PROMETHAZINE [Concomitant]
     Dosage: 25 MG DAILY
     Dates: start: 20111011
  2. REQUIP [Concomitant]
     Indication: RESTLESS LEGS SYNDROME
  3. AMITRIPTYLINE HCL [Concomitant]
  4. MERCAPTOPURINE [Concomitant]
     Dates: start: 20120116
  5. PREDNISONE [Concomitant]
  6. PREDNISONE [Concomitant]
     Dosage: DOSE TAPERED
  7. MERCAPTOPURINE [Concomitant]
  8. CIMZIA [Suspect]
     Indication: CROHN'S DISEASE
     Route: 058
     Dates: start: 20111222

REACTIONS (4)
  - ARTHRALGIA [None]
  - DYSPNOEA [None]
  - URTICARIA [None]
  - PYREXIA [None]
